FAERS Safety Report 7864155-9 (Version None)
Quarter: 2011Q4

REPORT INFORMATION
  Report Type: 
  Country: None (occurrence: None)
  Receive Date: 20111028
  Receipt Date: 20111021
  Transmission Date: 20120403
  Serious: Yes (Other)
  Sender: FDA-Public Use
  Company Number: US-PFIZER INC-2011257233

PATIENT
  Age: 43 Year
  Sex: Female

DRUGS (2)
  1. CELEBREX [Suspect]
     Dosage: 200 MG, UNK
  2. LISDEXAMFETAMINE [Suspect]
     Indication: ATTENTION DEFICIT/HYPERACTIVITY DISORDER
     Dosage: 30 MG, UNK

REACTIONS (6)
  - SWELLING [None]
  - HEART RATE DECREASED [None]
  - HYPOTENSION [None]
  - OEDEMA [None]
  - PRURITUS [None]
  - RASH [None]
